FAERS Safety Report 4933428-1 (Version None)
Quarter: 2006Q1

REPORT INFORMATION
  Report Type: 
  Country: None (occurrence: None)
  Receive Date: 20060306
  Receipt Date: 20060118
  Transmission Date: 20060701
  Serious: Yes (Hospitalization)
  Sender: FDA-Public Use
  Company Number: IT-GLAXOSMITHKLINE-B0407505A

PATIENT
  Age: 49 Year
  Sex: Female

DRUGS (2)
  1. PAROXETINE HYDROCHLORIDE [Suspect]
     Indication: DEPRESSION
     Dosage: 20MG PER DAY
     Route: 048
     Dates: start: 20051210, end: 20051216
  2. DIAZEPAM [Concomitant]
     Dosage: 5DR PER DAY
     Route: 048

REACTIONS (4)
  - CATATONIA [None]
  - DELIRIUM [None]
  - PSYCHOMOTOR HYPERACTIVITY [None]
  - SCREAMING [None]
